FAERS Safety Report 5307988-5 (Version None)
Quarter: 2007Q2

REPORT INFORMATION
  Report Type: 
  Country: None (occurrence: None)
  Receive Date: 20070426
  Receipt Date: 20070411
  Transmission Date: 20071010
  Serious: Yes (Other)
  Sender: FDA-Public Use
  Company Number: 2007AP02041

PATIENT
  Age: 21326 Day
  Sex: Female

DRUGS (9)
  1. OMEPRAZON [Suspect]
     Indication: REFLUX OESOPHAGITIS
     Route: 048
     Dates: start: 20070317, end: 20070331
  2. SLOW-K [Concomitant]
     Dates: start: 20041105
  3. PHOSBLOCK [Concomitant]
     Dates: start: 20030825
  4. FULSTAN [Concomitant]
     Dates: start: 20031105
  5. TENORMIN [Concomitant]
     Dates: start: 20070317
  6. CARDENALIN [Concomitant]
     Dates: start: 20070317
  7. FERROMIA [Concomitant]
     Dates: start: 20070317
  8. EPOGIN S9000, 12000 [Concomitant]
     Dates: start: 20050819
  9. MIDPELIQ L135 [Concomitant]
     Dates: start: 20000207

REACTIONS (1)
  - DELIRIUM [None]
